FAERS Safety Report 11702041 (Version 3)
Quarter: 2016Q4

REPORT INFORMATION
  Report Type: Report from Study
  Country: JP (occurrence: JP)
  Receive Date: 20151105
  Receipt Date: 20161128
  Transmission Date: 20170206
  Serious: Yes (Life-Threatening, Hospitalization, Other)
  Sender: FDA-Public Use
  Company Number: PHHY2015JP139573

PATIENT
  Age: 48 Year
  Sex: Female

DRUGS (24)
  1. EPIRUBICIN HYDROCHLORIDE INJECTION [Suspect]
     Active Substance: EPIRUBICIN HYDROCHLORIDE
     Indication: HER-2 POSITIVE BREAST CANCER
     Dosage: 143 MG, UNK
     Route: 065
     Dates: start: 20150417, end: 20150619
  2. DOCETAXEL. [Suspect]
     Active Substance: DOCETAXEL
     Dosage: 107 MG, (1 IN 3 WK)
     Route: 042
     Dates: start: 20150731
  3. TRASTUZUMAB [Suspect]
     Active Substance: TRASTUZUMAB
     Dosage: 280 MG, UNK (1 IN 3 WK) MAINTAINANCE DOSE
     Route: 042
     Dates: start: 20150731
  4. REBAMIPIDE [Concomitant]
     Active Substance: REBAMIPIDE
     Indication: GASTRITIS PROPHYLAXIS
     Dosage: UNK
     Route: 065
     Dates: start: 20150508, end: 20150730
  5. 5 FLUORO URACIL [Suspect]
     Active Substance: FLUOROURACIL
     Indication: HER-2 POSITIVE BREAST CANCER
     Dosage: 715 MG, UNK
     Route: 065
     Dates: start: 20150417, end: 20150619
  6. EMEND [Concomitant]
     Active Substance: APREPITANT
     Indication: PRODUCT USED FOR UNKNOWN INDICATION
     Route: 065
     Dates: start: 20150417, end: 20150621
  7. RADICUT [Concomitant]
     Active Substance: EDARAVONE
     Indication: PRODUCT USED FOR UNKNOWN INDICATION
     Route: 065
     Dates: start: 20151007, end: 20151011
  8. PERTUZUMAB [Suspect]
     Active Substance: PERTUZUMAB
     Dosage: 420 MG, (MAINTAINANCE DOSE) (1 IN 3 WK)
     Route: 042
     Dates: start: 20150731
  9. HEPARIN [Concomitant]
     Active Substance: HEPARIN SODIUM
     Indication: PRODUCT USED FOR UNKNOWN INDICATION
     Route: 065
     Dates: start: 20150824, end: 20151009
  10. SPIRONOLACTONE. [Concomitant]
     Active Substance: SPIRONOLACTONE
     Indication: PRODUCT USED FOR UNKNOWN INDICATION
     Route: 065
  11. DOCETAXEL. [Suspect]
     Active Substance: DOCETAXEL
     Indication: HER-2 POSITIVE BREAST CANCER
     Dosage: 107 MG, UNK
     Route: 042
     Dates: start: 20150710
  12. CYCLOPHOSPHAMIDE. [Suspect]
     Active Substance: CYCLOPHOSPHAMIDE
     Indication: HER-2 POSITIVE BREAST CANCER
     Dosage: 715 MG, UNK
     Route: 065
     Dates: start: 20150417, end: 20150619
  13. BAYASPIRIN [Concomitant]
     Active Substance: ASPIRIN
     Indication: THROMBOSIS PROPHYLAXIS
     Route: 065
     Dates: start: 20150908, end: 20151011
  14. PERSANTIN [Concomitant]
     Active Substance: DIPYRIDAMOLE
     Indication: THROMBOSIS PROPHYLAXIS
     Dosage: UNK
     Route: 065
     Dates: start: 20150916, end: 20151011
  15. WARFARIN [Concomitant]
     Active Substance: WARFARIN
     Indication: THROMBOSIS PROPHYLAXIS
     Route: 065
     Dates: start: 201508, end: 20151006
  16. TRASTUZUMAB [Suspect]
     Active Substance: TRASTUZUMAB
     Indication: HER-2 POSITIVE BREAST CANCER
     Dosage: 373 MG, UNK
     Route: 042
     Dates: start: 20150710
  17. DECADRON [Concomitant]
     Active Substance: DEXAMETHASONE
     Indication: PREMEDICATION
     Dosage: UNK
     Route: 065
     Dates: start: 20150417, end: 20150731
  18. FERROUS SULFATE. [Concomitant]
     Active Substance: FERROUS SULFATE
     Indication: AUTOIMMUNE HAEMOLYTIC ANAEMIA
     Route: 065
     Dates: start: 20150508, end: 20150730
  19. FUROSEMIDE. [Concomitant]
     Active Substance: FUROSEMIDE
     Indication: OEDEMA PERIPHERAL
     Route: 065
     Dates: start: 20150731
  20. DECADRON [Concomitant]
     Active Substance: DEXAMETHASONE
     Route: 065
     Dates: start: 20150418, end: 20150803
  21. ALOXI [Concomitant]
     Active Substance: PALONOSETRON HYDROCHLORIDE
     Indication: PRODUCT USED FOR UNKNOWN INDICATION
     Route: 065
     Dates: start: 20150417, end: 20150619
  22. PERTUZUMAB [Suspect]
     Active Substance: PERTUZUMAB
     Indication: HER-2 POSITIVE BREAST CANCER
     Dosage: 840 MG, LOADING DOSE
     Route: 042
     Dates: start: 20150710
  23. DEXART [Concomitant]
     Active Substance: DEXAMETHASONE SODIUM PHOSPHATE
     Indication: PREMEDICATION
     Route: 065
  24. GLYCEROL [Concomitant]
     Active Substance: GLYCERIN
     Indication: BRAIN OEDEMA
     Route: 065
     Dates: start: 20151007, end: 20151009

REACTIONS (2)
  - Cerebral infarction [Recovered/Resolved]
  - Left ventricular dysfunction [Recovered/Resolved]

NARRATIVE: CASE EVENT DATE: 20150821
